FAERS Safety Report 8255179 (Version 9)
Quarter: 2016Q3

REPORT INFORMATION
  Report Type: Spontaneous
  Country: JP (occurrence: JP)
  Receive Date: 20111118
  Receipt Date: 20160818
  Transmission Date: 20161109
  Serious: Yes (Life-Threatening, Hospitalization, Other)
  Sender: FDA-Public Use
  Company Number: JP-GLAXOSMITHKLINE-B0762781A

PATIENT
  Age: 39 Year
  Sex: Female
  Weight: 71 kg

DRUGS (7)
  1. SELENICA-R [Suspect]
     Active Substance: VALPROATE SODIUM
     Indication: BIPOLAR I DISORDER
     Route: 048
     Dates: start: 20060602, end: 20111117
  2. LAMOTRIGINE. [Suspect]
     Active Substance: LAMOTRIGINE
     Indication: BIPOLAR I DISORDER
     Route: 048
     Dates: start: 20111112, end: 20111113
  3. RIVOTRIL [Concomitant]
     Active Substance: CLONAZEPAM
     Route: 048
  4. LAMOTRIGINE. [Suspect]
     Active Substance: LAMOTRIGINE
     Indication: BIPOLAR I DISORDER
     Route: 048
     Dates: start: 20111028, end: 20111111
  5. SEROQUEL [Concomitant]
     Active Substance: QUETIAPINE FUMARATE
     Route: 048
  6. CONSTAN [Concomitant]
     Active Substance: ALPRAZOLAM
     Route: 048
  7. DESYREL [Concomitant]
     Active Substance: TRAZODONE HYDROCHLORIDE
     Route: 048

REACTIONS (21)
  - Mucosal erosion [Recovered/Resolved]
  - Erythema [Recovered/Resolved]
  - Pyrexia [Recovered/Resolved]
  - Blister [Recovered/Resolved]
  - Alanine aminotransferase increased [Recovered/Resolved]
  - C-reactive protein increased [Recovered/Resolved]
  - Rash [Recovered/Resolved]
  - Lip erosion [Recovered/Resolved]
  - Skin erosion [Recovered/Resolved]
  - Lymphocyte percentage decreased [Recovered/Resolved]
  - Monocyte percentage abnormal [Recovered/Resolved]
  - Onychomadesis [Recovered/Resolved]
  - Epidermal necrosis [Recovered/Resolved]
  - Oral mucosa erosion [Recovered/Resolved]
  - Toxic epidermal necrolysis [Recovered/Resolved]
  - Scab [Recovered/Resolved]
  - Vulval ulceration [Recovered/Resolved]
  - Skin degenerative disorder [Recovered/Resolved]
  - Neutrophil percentage increased [Recovered/Resolved]
  - Eye discharge [Recovered/Resolved]
  - Rash maculo-papular [Recovered/Resolved]

NARRATIVE: CASE EVENT DATE: 20111112
